FAERS Safety Report 15976301 (Version 2)
Quarter: 2019Q2

REPORT INFORMATION
  Report Type: Spontaneous
  Country: US (occurrence: US)
  Receive Date: 20190218
  Receipt Date: 20190402
  Transmission Date: 20190711
  Serious: No
  Sender: FDA-Public Use
  Company Number: US-PFIZER INC-2019067268

PATIENT
  Age: 74 Year
  Sex: Female
  Weight: 81.65 kg

DRUGS (1)
  1. LYRICA [Suspect]
     Active Substance: PREGABALIN
     Indication: FIBROMYALGIA
     Dosage: 75 MG, TWICE A DAY (EARLY IN THE MORNING AND BEFORE BED)
     Route: 048
     Dates: start: 20180323

REACTIONS (4)
  - Paraesthesia [Recovered/Resolved]
  - Irritable bowel syndrome [Unknown]
  - Paraesthesia oral [Unknown]
  - Insomnia [Unknown]
